FAERS Safety Report 15435463 (Version 1)
Quarter: 2018Q3

REPORT INFORMATION
  Report Type: Spontaneous
  Country: GB (occurrence: GB)
  Receive Date: 20180927
  Receipt Date: 20180927
  Transmission Date: 20181010
  Serious: Yes (Disabling, Other)
  Sender: FDA-Public Use
  Company Number: GB-MYLANLABS-2018M1070017

PATIENT
  Age: 49 Year
  Sex: Male
  Weight: 71 kg

DRUGS (2)
  1. XENIDATE XL [Suspect]
     Active Substance: METHYLPHENIDATE HYDROCHLORIDE
     Indication: ATTENTION DEFICIT/HYPERACTIVITY DISORDER
     Dosage: 54 MG, UNK
     Route: 048
     Dates: start: 20170601, end: 20180401
  2. SERTRALINE HYDROCHLORIDE. [Concomitant]
     Active Substance: SERTRALINE HYDROCHLORIDE
     Indication: PRODUCT USED FOR UNKNOWN INDICATION
     Dosage: UNK
     Route: 065

REACTIONS (6)
  - Palpitations [Unknown]
  - Product substitution issue [Unknown]
  - Anxiety [Unknown]
  - Thirst [Unknown]
  - Abnormal loss of weight [Unknown]
  - Somnolence [Unknown]

NARRATIVE: CASE EVENT DATE: 20170601
